FAERS Safety Report 9912930 (Version 3)
Quarter: 2016Q2

REPORT INFORMATION
  Report Type: Report from Study
  Country: US (occurrence: US)
  Receive Date: 20140220
  Receipt Date: 20160427
  Transmission Date: 20160815
  Serious: Yes (Other)
  Sender: FDA-Public Use
  Company Number: US-ROCHE-1352832

PATIENT
  Age: 87 Year
  Sex: Female

DRUGS (11)
  1. LUCENTIS [Suspect]
     Active Substance: RANIBIZUMAB
     Route: 050
  2. LIBRIUM [Concomitant]
     Active Substance: CHLORDIAZEPOXIDE HYDROCHLORIDE
     Indication: DEPRESSION
     Route: 048
  3. DEXILANT [Concomitant]
     Active Substance: DEXLANSOPRAZOLE
     Indication: GASTROOESOPHAGEAL REFLUX DISEASE
     Dosage: BEFORE DINNER
     Route: 048
  4. LISINOPRIL. [Concomitant]
     Active Substance: LISINOPRIL
     Indication: BLOOD PRESSURE MEASUREMENT
     Route: 048
  5. FISH OIL [Concomitant]
     Active Substance: FISH OIL
     Route: 048
  6. METAMUCIL [Concomitant]
     Active Substance: PLANTAGO SEED
     Dosage: AT BED TIME
     Route: 048
  7. TYLENOL [Concomitant]
     Active Substance: ACETAMINOPHEN
     Indication: ARTHRITIS
     Route: 048
  8. VESICARE [Concomitant]
     Active Substance: SOLIFENACIN SUCCINATE
     Dosage: HALF TABLET AT BEDTIME
     Route: 048
  9. LUCENTIS [Suspect]
     Active Substance: RANIBIZUMAB
     Indication: NEOVASCULAR AGE-RELATED MACULAR DEGENERATION
     Dosage: LEFT EYE
     Route: 050
  10. NORVASC [Concomitant]
     Active Substance: AMLODIPINE BESYLATE
     Indication: BLOOD PRESSURE MEASUREMENT
     Dosage: AT BEDTIME
     Route: 048
  11. ASPIRIN. [Concomitant]
     Active Substance: ASPIRIN
     Route: 048

REACTIONS (7)
  - Drug ineffective [Unknown]
  - Cerebrovascular accident [Unknown]
  - Transient ischaemic attack [Recovered/Resolved]
  - Dehydration [Unknown]
  - Reading disorder [Unknown]
  - Blood pressure inadequately controlled [Recovered/Resolved]
  - Visual acuity reduced [Recovering/Resolving]

NARRATIVE: CASE EVENT DATE: 201310
